FAERS Safety Report 13506443 (Version 1)
Quarter: 2017Q2

REPORT INFORMATION
  Report Type: Spontaneous
  Country: US (occurrence: US)
  Receive Date: 20170502
  Receipt Date: 20170502
  Transmission Date: 20170830
  Serious: No
  Sender: FDA-Public Use
  Company Number: US-ROCHE-1297622

PATIENT
  Sex: Female

DRUGS (3)
  1. CISPLATIN. [Concomitant]
     Active Substance: CISPLATIN
     Dosage: 6 ROUNDS
     Route: 033
  2. AVASTIN [Suspect]
     Active Substance: BEVACIZUMAB
     Indication: PRODUCT USED FOR UNKNOWN INDICATION
     Dosage: 6 ROUNDS
     Route: 042
  3. TAXOL [Concomitant]
     Active Substance: PACLITAXEL
     Dosage: 6 ROUNDS
     Route: 042

REACTIONS (4)
  - Nausea [Unknown]
  - Arthralgia [Unknown]
  - Neutropenia [Unknown]
  - Fatigue [Unknown]
